FAERS Safety Report 15014378 (Version 1)
Quarter: 2018Q2

REPORT INFORMATION
  Report Type: Report from Study
  Country: None (occurrence: IE)
  Receive Date: 20180615
  Receipt Date: 20180615
  Transmission Date: 20180711
  Serious: Yes (Hospitalization)
  Sender: FDA-Public Use
  Company Number: IE-ABBVIE-18K-229-2313123-00

PATIENT
  Sex: Male

DRUGS (1)
  1. HUMIRA [Suspect]
     Active Substance: ADALIMUMAB
     Indication: CROHN^S DISEASE
     Route: 058
     Dates: start: 20160414, end: 201610

REACTIONS (6)
  - Gastrointestinal stenosis [Recovered/Resolved]
  - Gastrointestinal obstruction [Recovered/Resolved]
  - Intestinal fibrosis [Recovered/Resolved]
  - Drug ineffective [Recovered/Resolved]
  - Gastrointestinal inflammation [Recovered/Resolved]
  - Crohn^s disease [Recovered/Resolved]
